FAERS Safety Report 24445340 (Version 2)
Quarter: 2024Q4

REPORT INFORMATION
  Report Type: Spontaneous
  Country: US (occurrence: US)
  Receive Date: 20241016
  Receipt Date: 20241023
  Transmission Date: 20250115
  Serious: No
  Sender: NOVARTIS
  Company Number: US-002147023-NVSC2024US202339

PATIENT
  Sex: Male

DRUGS (1)
  1. INCLISIRAN [Suspect]
     Active Substance: INCLISIRAN
     Indication: Low density lipoprotein decreased
     Dosage: 284 MG, OTHER (EVERY 6 MONTHS)
     Route: 058

REACTIONS (1)
  - Therapeutic product effect decreased [Not Recovered/Not Resolved]
